FAERS Safety Report 11126879 (Version 3)
Quarter: 2015Q2

REPORT INFORMATION
  Report Type: Spontaneous
  Country: JP (occurrence: JP)
  Receive Date: 20150520
  Receipt Date: 20150630
  Transmission Date: 20150821
  Serious: Yes (Hospitalization)
  Sender: FDA-Public Use
  Company Number: JP-MERCK-1505JPN005239

PATIENT
  Age: 76 Year
  Sex: Male
  Weight: 61 kg

DRUGS (6)
  1. MUCOSTA [Concomitant]
     Active Substance: REBAMIPIDE
     Indication: GASTRITIS
     Dosage: 1 DOSE FORM, BID
     Route: 048
     Dates: start: 20150204, end: 20150320
  2. VOLTAREN [Concomitant]
     Active Substance: DICLOFENAC SODIUM
     Dosage: DAILY DOSE UNKNOWN
     Route: 054
  3. CELECOX [Concomitant]
     Active Substance: CELECOXIB
     Indication: PAIN
     Dosage: 1 DOSE FORM, BID
     Route: 048
     Dates: start: 20150204, end: 20150320
  4. CUBICIN [Suspect]
     Active Substance: DAPTOMYCIN
     Indication: STAPHYLOCOCCAL INFECTION
     Dosage: 350 MG, QD
     Route: 041
     Dates: start: 20150213, end: 20150307
  5. REZALTAS [Concomitant]
     Active Substance: AZELNIDIPINE\OLMESARTAN MEDOXOMIL
     Dosage: 1 DOSE FORM, QD
     Route: 048
  6. RIFADIN [Concomitant]
     Active Substance: RIFAMPIN
     Indication: INFECTION
     Dosage: 2 DOSE FORM, BID
     Route: 048
     Dates: start: 20150216, end: 20150308

REACTIONS (1)
  - Pneumonia [Recovering/Resolving]

NARRATIVE: CASE EVENT DATE: 20150307
